FAERS Safety Report 8619361 (Version 3)
Quarter: 2014Q3

REPORT INFORMATION
  Report Type: Spontaneous
  Country: US (occurrence: US)
  Receive Date: 20120618
  Receipt Date: 20140722
  Transmission Date: 20150326
  Serious: Yes (Congenital Anomaly, Other)
  Sender: FDA-Public Use
  Company Number: US-PFIZER INC-2012142168

PATIENT
  Sex: Male

DRUGS (13)
  1. ZOLOFT [Suspect]
     Active Substance: SERTRALINE HYDROCHLORIDE
     Indication: ANXIETY
     Dosage: UNK
     Route: 064
     Dates: start: 2005, end: 2012
  2. ZOLOFT [Suspect]
     Active Substance: SERTRALINE HYDROCHLORIDE
     Indication: DEPRESSION
  3. PROTONIX DR [Concomitant]
     Dosage: UNK
     Route: 064
  4. ALBUTEROL. [Concomitant]
     Active Substance: ALBUTEROL
     Dosage: UNK
     Route: 064
  5. CELEXA [Concomitant]
     Active Substance: CITALOPRAM HYDROBROMIDE
     Dosage: UNK
     Route: 064
  6. ZOLOFT [Suspect]
     Active Substance: SERTRALINE HYDROCHLORIDE
     Indication: AFFECTIVE DISORDER
  7. APAP/CODEINE [Concomitant]
     Active Substance: ACETAMINOPHEN\CODEINE PHOSPHATE
     Dosage: UNK
     Route: 064
  8. PENICILLINE [Concomitant]
     Active Substance: PENICILLIN
     Dosage: UNK
     Route: 064
  9. PRENATAL VITAMINS [Concomitant]
     Active Substance: VITAMINS
     Dosage: UNK
     Route: 064
  10. PAXIL [Concomitant]
     Active Substance: PAROXETINE HYDROCHLORIDE
     Dosage: UNK
     Route: 064
  11. LEXAPRO [Concomitant]
     Active Substance: ESCITALOPRAM OXALATE
     Dosage: UNK
     Route: 064
  12. KETOPROFEN. [Concomitant]
     Active Substance: KETOPROFEN
     Dosage: UNK
     Route: 064
  13. AMOXICILLIN. [Concomitant]
     Active Substance: AMOXICILLIN
     Dosage: UNK
     Route: 064

REACTIONS (11)
  - Multiple cardiac defects [Unknown]
  - Atrial septal defect [Unknown]
  - Respiratory disorder [Unknown]
  - Congenital aortic valve stenosis [Unknown]
  - Maternal exposure during pregnancy [Unknown]
  - Coarctation of the aorta [Unknown]
  - Ventricular septal defect [Unknown]
  - Neonatal respiratory failure [Unknown]
  - Aortic valve incompetence [Unknown]
  - Aortic valve atresia [Unknown]
  - Premature baby [Unknown]

NARRATIVE: CASE EVENT DATE: 20050830
